FAERS Safety Report 6920694-6 (Version None)
Quarter: 2010Q3

REPORT INFORMATION
  Report Type: 
  Country: None (occurrence: None)
  Receive Date: 20100812
  Receipt Date: 20100802
  Transmission Date: 20110219
  Serious: Yes (Other)
  Sender: FDA-Public Use
  Company Number: DE-BAYER-201034635GPV

PATIENT
  Age: 63 Year
  Sex: Female
  Weight: 107 kg

DRUGS (6)
  1. SORAFENIB OR PLACEBO [Suspect]
     Indication: ACUTE MYELOID LEUKAEMIA
     Dosage: TOTAL DAILY DOSE: 800 MG  UNIT DOSE: 200 MG
     Route: 048
     Dates: start: 20070922, end: 20071001
  2. SORAFENIB OR PLACEBO [Suspect]
     Route: 048
     Dates: start: 20071013, end: 20071114
  3. CYTARABINE [Suspect]
     Indication: ACUTE MYELOID LEUKAEMIA
     Route: 041
     Dates: start: 20070913, end: 20070919
  4. CYTARABINE [Suspect]
     Route: 041
     Dates: start: 20071004, end: 20071010
  5. DAUNORUBICIN HCL [Suspect]
     Indication: ACUTE MYELOID LEUKAEMIA
     Route: 041
     Dates: start: 20070915, end: 20070917
  6. DAUNORUBICIN HCL [Suspect]
     Route: 041
     Dates: start: 20071006, end: 20071008

REACTIONS (1)
  - BONE MARROW FAILURE [None]
